FAERS Safety Report 17433372 (Version 1)
Quarter: 2020Q1

REPORT INFORMATION
  Report Type: Other
  Country: ES (occurrence: ES)
  Receive Date: 20200219
  Receipt Date: 20200219
  Transmission Date: 20200409
  Serious: Yes (Other)
  Sender: FDA-Public Use
  Company Number: ES-CELLTRION INC.-2020ES019127

PATIENT

DRUGS (14)
  1. MELPHALAN. [Suspect]
     Active Substance: MELPHALAN
     Indication: DIFFUSE LARGE B-CELL LYMPHOMA
     Dosage: 60 MG
     Route: 042
     Dates: start: 20150415
  2. VP-16 [Suspect]
     Active Substance: ETOPOSIDE
     Indication: DIFFUSE LARGE B-CELL LYMPHOMA
     Dosage: 150 MG
     Route: 042
     Dates: start: 20150411
  3. DEXAMETHASONE. [Suspect]
     Active Substance: DEXAMETHASONE
     Indication: DIFFUSE LARGE B-CELL LYMPHOMA
     Dosage: 20 MG
     Route: 065
     Dates: start: 20150316
  4. PREDNISONE. [Suspect]
     Active Substance: PREDNISONE
     Indication: B-CELL SMALL LYMPHOCYTIC LYMPHOMA
     Dosage: UNK
     Route: 065
     Dates: start: 201310, end: 20140226
  5. ARA-C [Suspect]
     Active Substance: CYTARABINE
     Indication: DIFFUSE LARGE B-CELL LYMPHOMA
     Dosage: 200 MG
     Route: 042
     Dates: start: 20150318
  6. ARA-C [Suspect]
     Active Substance: CYTARABINE
     Dosage: 4000 MG
     Route: 042
     Dates: start: 20150318
  7. RITUXIMAB (UNKNOWN) [Suspect]
     Active Substance: RITUXIMAB
     Indication: B-CELL SMALL LYMPHOCYTIC LYMPHOMA
     Dosage: UNK
     Route: 042
     Dates: start: 201310, end: 20140226
  8. BICNU [Suspect]
     Active Substance: CARMUSTINE
     Indication: DIFFUSE LARGE B-CELL LYMPHOMA
     Dosage: 120 MG
     Route: 065
  9. CISPLATIN. [Suspect]
     Active Substance: CISPLATIN
     Indication: DIFFUSE LARGE B-CELL LYMPHOMA
     Dosage: 200 MG
     Route: 065
     Dates: start: 20150317
  10. RITUXIMAB (UNKNOWN) [Suspect]
     Active Substance: RITUXIMAB
     Indication: DIFFUSE LARGE B-CELL LYMPHOMA
     Dosage: 780 MG
     Route: 042
     Dates: start: 20150316
  11. DOXORUBICIN [Suspect]
     Active Substance: DOXORUBICIN
     Indication: B-CELL SMALL LYMPHOCYTIC LYMPHOMA
     Dosage: UNK
     Route: 065
     Dates: start: 201310, end: 20140226
  12. RITUXIMAB (UNKNOWN) [Suspect]
     Active Substance: RITUXIMAB
     Dosage: 780 MG
     Route: 042
     Dates: start: 20150409
  13. CYCLOPHOSPHAMIDE. [Suspect]
     Active Substance: CYCLOPHOSPHAMIDE
     Indication: B-CELL SMALL LYMPHOCYTIC LYMPHOMA
     Dosage: UNK
     Route: 065
     Dates: start: 201310, end: 20140226
  14. VINCRISTINE [Suspect]
     Active Substance: VINCRISTINE
     Indication: B-CELL SMALL LYMPHOCYTIC LYMPHOMA
     Dosage: UNK
     Route: 065
     Dates: start: 201310, end: 20140226

REACTIONS (7)
  - Bacteraemia [Unknown]
  - Neuropathy peripheral [Unknown]
  - Mucosal inflammation [Unknown]
  - Urinary tract infection [Unknown]
  - Nephropathy toxic [Unknown]
  - Haematotoxicity [Unknown]
  - Febrile neutropenia [Unknown]
